FAERS Safety Report 24253176 (Version 1)
Quarter: 2024Q3

REPORT INFORMATION
  Report Type: Spontaneous
  Country: CN (occurrence: CN)
  Receive Date: 20240827
  Receipt Date: 20240827
  Transmission Date: 20241017
  Serious: Yes (Life-Threatening)
  Sender: SHANGHAI HENGRUI PHARMACEUTICAL
  Company Number: CN-Shanghai Hengrui Pharmaceutical Co., Ltd.-2160901

PATIENT
  Age: 30 Year
  Sex: Male
  Weight: 52 kg

DRUGS (7)
  1. SEVOFLURANE [Suspect]
     Active Substance: SEVOFLURANE
     Indication: General anaesthesia
     Dates: start: 20240813, end: 20240813
  2. CISATRACURIUM BESYLATE [Suspect]
     Active Substance: CISATRACURIUM BESYLATE
     Route: 042
     Dates: start: 20240813, end: 20240813
  3. PENEHYCLIDINE HYDROCHLORIDE [Suspect]
     Active Substance: PENEHYCLIDINE HYDROCHLORIDE
     Route: 042
     Dates: start: 20240813, end: 20240813
  4. PROPOFOL [Suspect]
     Active Substance: PROPOFOL
     Route: 042
     Dates: start: 20240813, end: 20240813
  5. MIDAZOLAM [Suspect]
     Active Substance: MIDAZOLAM
     Route: 042
     Dates: start: 20240813, end: 20240813
  6. REMIFENTANIL HYDROCHLORIDE [Suspect]
     Active Substance: REMIFENTANIL HYDROCHLORIDE
     Route: 042
     Dates: start: 20240813, end: 20240813
  7. SUFENTANIL CITRATE [Suspect]
     Active Substance: SUFENTANIL CITRATE
     Route: 042
     Dates: start: 20240813, end: 20240813

REACTIONS (1)
  - Anaphylactic shock [Recovering/Resolving]

NARRATIVE: CASE EVENT DATE: 20240813
